FAERS Safety Report 8505099-9 (Version None)
Quarter: 2012Q3

REPORT INFORMATION
  Report Type: 
  Country: None (occurrence: None)
  Receive Date: 20120712
  Receipt Date: 20120702
  Transmission Date: 20120928
  Serious: Yes (Other)
  Sender: FDA-Public Use
  Company Number: PHHY2012JP030358

PATIENT
  Sex: Male

DRUGS (7)
  1. EXJADE [Suspect]
     Indication: IRON OVERLOAD
     Dosage: 500 MG, DAILY
     Route: 048
     Dates: start: 20100519, end: 20100615
  2. RED BLOOD CELLS, CONCENTRATED [Concomitant]
     Dosage: 2 U, EVERY 2 WEEKS
     Dates: start: 20100519, end: 20100609
  3. BLOOD TRANSFUSION, AUXILIARY PRODUCTS [Concomitant]
     Dosage: UNK
     Dates: start: 20100519
  4. RED BLOOD CELLS, CONCENTRATED [Concomitant]
     Dosage: 2 U, EVERY 2 WEEKS
     Dates: start: 20100609, end: 20100623
  5. RED BLOOD CELLS, CONCENTRATED [Concomitant]
     Dosage: EVERY 2 WEEKS
     Dates: start: 20100714, end: 20100811
  6. RED BLOOD CELLS, CONCENTRATED [Concomitant]
     Dosage: EVERY 3 WEEKS
     Dates: start: 20100811, end: 20101013
  7. RED BLOOD CELLS, CONCENTRATED [Concomitant]
     Dosage: EVERY WEEK
     Dates: start: 20100623, end: 20100714

REACTIONS (2)
  - RASH [None]
  - ANAEMIA [None]
